FAERS Safety Report 13289591 (Version 1)
Quarter: 2017Q1

REPORT INFORMATION
  Report Type: Spontaneous
  Country: US (occurrence: US)
  Receive Date: 20170302
  Receipt Date: 20170302
  Transmission Date: 20170428
  Serious: Yes (Other)
  Sender: FDA-Public Use
  Company Number: US-DEPOMED, INC.-US-2016DEP013001

PATIENT

DRUGS (1)
  1. GRALISE [Suspect]
     Active Substance: GABAPENTIN
     Indication: NEURALGIA
     Dosage: 2400 MG, QD

REACTIONS (4)
  - Product use issue [Unknown]
  - Overdose [Unknown]
  - Drug titration error [Unknown]
  - Drug prescribing error [Unknown]
